FAERS Safety Report 6469974-1 (Version None)
Quarter: 2009Q4

REPORT INFORMATION
  Report Type: 
  Country: None (occurrence: None)
  Receive Date: 20091203
  Receipt Date: 20071204
  Transmission Date: 20100525
  Serious: Yes (Death, Hospitalization)
  Sender: FDA-Public Use
  Company Number: TR-ELI_LILLY_AND_COMPANY-TR200712000969

PATIENT
  Sex: Male
  Weight: 55 kg

DRUGS (6)
  1. HUMULIN R [Suspect]
     Indication: TYPE 2 DIABETES MELLITUS
     Dosage: 6 UNITS, EACH MORNING AND NOON
     Route: 058
     Dates: start: 20070701
  2. HUMULIN R [Suspect]
     Dosage: 8 U, EACH EVENING
     Route: 058
     Dates: start: 20070701
  3. LANTUS [Concomitant]
     Indication: TYPE 2 DIABETES MELLITUS
     Dosage: 14 U, EACH EVENING
     Route: 058
     Dates: start: 20070701
  4. ANTIHYPERTENSIVES [Concomitant]
     Indication: HYPERTENSION
  5. INSULIN [Concomitant]
     Indication: TYPE 2 DIABETES MELLITUS
     Dates: end: 20070701
  6. INSULIN ASPART [Concomitant]
     Dates: end: 20070701

REACTIONS (2)
  - BLOOD GLUCOSE INCREASED [None]
  - GANGRENE [None]
